FAERS Safety Report 17256881 (Version 1)
Quarter: 2020Q1

REPORT INFORMATION
  Report Type: Spontaneous
  Country: US (occurrence: US)
  Receive Date: 20200108
  Receipt Date: 20200108
  Transmission Date: 20200409
  Serious: Yes (Other)
  Sender: FDA-Public Use
  Company Number: None

PATIENT
  Age: 36 Year
  Sex: Female
  Weight: 60.75 kg

DRUGS (1)
  1. SUMATRIPTAN INJECTION USP (AUTOINJECTOR) 6MG/0.5ML [Suspect]
     Active Substance: SUMATRIPTAN
     Indication: MIGRAINE
     Dosage: ?          QUANTITY:1 INJECTION(S);?
     Route: 058
     Dates: start: 20191227, end: 20200108

REACTIONS (5)
  - Device difficult to use [None]
  - Wound [None]
  - Device malfunction [None]
  - Anxiety [None]
  - Injection site haemorrhage [None]

NARRATIVE: CASE EVENT DATE: 20200108
